FAERS Safety Report 4706415-6 (Version None)
Quarter: 2005Q2

REPORT INFORMATION
  Report Type: 
  Country: None (occurrence: None)
  Receive Date: 20050629
  Receipt Date: 20050408
  Transmission Date: 20051028
  Serious: No
  Sender: FDA-Public Use
  Company Number: 05P-163-0296888-00

PATIENT
  Age: 47 Year
  Sex: Female

DRUGS (4)
  1. HUMIRA [Suspect]
     Indication: ARTHRITIS
     Dosage: 40 MG, 1 IN 2 WK, SUBCUTANEOUS
     Route: 058
     Dates: start: 20041231
  2. METHYLPREDNISOLONE 16MG TAB [Concomitant]
  3. METHOTREXATE [Concomitant]
  4. ZOCOR [Concomitant]

REACTIONS (1)
  - HEADACHE [None]
